FAERS Safety Report 9251581 (Version 1)
Quarter: 2013Q2

REPORT INFORMATION
  Report Type: Spontaneous
  Country: US (occurrence: US)
  Receive Date: 20130424
  Receipt Date: 20130424
  Transmission Date: 20140414
  Serious: No
  Sender: FDA-Public Use
  Company Number: US-PFIZER INC-2013125377

PATIENT
  Age: 86 Year
  Sex: Male

DRUGS (8)
  1. TOVIAZ [Suspect]
     Indication: URINARY INCONTINENCE
     Dosage: 4 MG, 1X/DAY
     Dates: start: 201303
  2. DILTIAZEM HYDROCHLORIDE [Concomitant]
     Indication: CARDIAC DISORDER
     Dosage: 240 MG, 1X/DAY
  3. LISINOPRIL [Concomitant]
     Indication: HYPERTENSION
     Dosage: 40 MG, 1X/DAY
  4. LIPITOR [Concomitant]
     Indication: BLOOD CHOLESTEROL ABNORMAL
     Dosage: 40 MG, 1X/DAY
  5. ZETIA [Concomitant]
     Indication: DRUG THERAPY ENHANCEMENT
     Dosage: 10 MG, 1X/DAY
  6. TYLENOL [Concomitant]
     Indication: HEADACHE
     Dosage: UNK, AS NEEDED
  7. TYLENOL [Concomitant]
     Indication: ARTHRALGIA
  8. NEXIUM [Concomitant]
     Indication: GASTRIC DISORDER
     Dosage: 40 MG, 1X/DAY

REACTIONS (1)
  - Dry mouth [Recovered/Resolved]
